FAERS Safety Report 8916914 (Version 2)
Quarter: 2013Q1

REPORT INFORMATION
  Report Type: Spontaneous
  Country: US (occurrence: US)
  Receive Date: 20121120
  Receipt Date: 20130102
  Transmission Date: 20140127
  Serious: No
  Sender: FDA-Public Use
  Company Number: US-PFIZER INC-2012287284

PATIENT
  Age: 26 Year
  Sex: Female
  Weight: 56.69 kg

DRUGS (5)
  1. ALDACTONE [Suspect]
     Indication: ENDOMETRIOSIS
     Dosage: 200 MG, DAILY
     Dates: end: 20121008
  2. ALDACTONE [Suspect]
     Indication: POLYCYSTIC OVARIES
     Dosage: UNK
     Dates: start: 20121112
  3. ALDACTONE [Suspect]
     Indication: INSULIN RESISTANCE
  4. ZOVIA [Concomitant]
     Indication: CONTRACEPTION
     Dosage: 50MCG/1MG, DAILY
  5. WELLBUTRIN XL [Concomitant]
     Indication: DEPRESSION
     Dosage: 150 MG, DAILY
     Route: 048

REACTIONS (7)
  - Off label use [Unknown]
  - Endocrine disorder [Not Recovered/Not Resolved]
  - Psychomotor hyperactivity [Not Recovered/Not Resolved]
  - Acne [Not Recovered/Not Resolved]
  - Menorrhagia [Not Recovered/Not Resolved]
  - Hypertrichosis [Not Recovered/Not Resolved]
  - Mood altered [Not Recovered/Not Resolved]
